FAERS Safety Report 9816913 (Version 1)
Quarter: 2014Q1

REPORT INFORMATION
  Report Type: Spontaneous
  Country: DE (occurrence: GB)
  Receive Date: 20140114
  Receipt Date: 20140114
  Transmission Date: 20141002
  Serious: Yes (Hospitalization, Disabling)
  Sender: FDA-Public Use
  Company Number: GB-FRI-1000052820

PATIENT
  Age: 83 Year
  Sex: Male
  Weight: 63 kg

DRUGS (3)
  1. MEMANTINE [Suspect]
     Indication: DEMENTIA
     Dosage: 20 MG
     Route: 048
     Dates: end: 20131019
  2. MEMANTINE [Suspect]
     Dosage: TITRATEDUP TO 20 MG DAILY
     Route: 048
     Dates: start: 20131025, end: 20131213
  3. LACTULOSE [Concomitant]
     Route: 048

REACTIONS (5)
  - Vomiting [Unknown]
  - Decreased appetite [Recovering/Resolving]
  - Mobility decreased [Recovering/Resolving]
  - Sedation [Recovering/Resolving]
  - Somnolence [Recovering/Resolving]
